FAERS Safety Report 8615196-5 (Version None)
Quarter: 2012Q3

REPORT INFORMATION
  Report Type: 
  Country: None (occurrence: None)
  Receive Date: 20120823
  Receipt Date: 20120813
  Transmission Date: 20120928
  Serious: Yes (Hospitalization)
  Sender: FDA-Public Use
  Company Number: US-VERTEX PHARMACEUTICAL INC.-2012-019720

PATIENT
  Sex: Male

DRUGS (3)
  1. RIBAVIRIN [Concomitant]
     Indication: HEPATITIS C
     Dosage: UNK
     Dates: start: 20111025, end: 20120427
  2. PEGASYS [Concomitant]
     Indication: HEPATITIS C
     Dosage: UNK
     Dates: start: 20111025, end: 20120427
  3. VX-950 [Suspect]
     Indication: HEPATITIS C
     Dosage: UNK
     Route: 048
     Dates: start: 20111025, end: 20120117

REACTIONS (8)
  - DEPRESSION [None]
  - DYSPNOEA [None]
  - ALOPECIA [None]
  - CHEST PAIN [None]
  - WEIGHT DECREASED [None]
  - ANORECTAL DISCOMFORT [None]
  - PULMONARY EMBOLISM [None]
  - DECREASED APPETITE [None]
